FAERS Safety Report 5361992-X (Version None)
Quarter: 2007Q2

REPORT INFORMATION
  Report Type: 
  Country: None (occurrence: None)
  Receive Date: 20070619
  Receipt Date: 20070605
  Transmission Date: 20071010
  Serious: Yes (Other)
  Sender: FDA-Public Use
  Company Number: FR-ELI_LILLY_AND_COMPANY-FR200706000730

PATIENT
  Age: 71 Year
  Sex: Female

DRUGS (1)
  1. FORTEO [Suspect]
     Indication: OSTEOPOROSIS
     Dosage: 20 UG, DAILY (1/D)
     Route: 058
     Dates: start: 20060522

REACTIONS (5)
  - CREATININE RENAL CLEARANCE DECREASED [None]
  - ERYTHEMA [None]
  - MUSCULOSKELETAL PAIN [None]
  - PRURITUS [None]
  - RENAL FAILURE [None]
